FAERS Safety Report 4943852-9 (Version None)
Quarter: 2006Q1

REPORT INFORMATION
  Report Type: 
  Country: None (occurrence: None)
  Receive Date: 20060310
  Receipt Date: 20060224
  Transmission Date: 20060701
  Serious: Yes (Life-Threatening, Hospitalization)
  Sender: FDA-Public Use
  Company Number: 222192

PATIENT
  Age: 48 Year
  Sex: Female
  Weight: 42 kg

DRUGS (6)
  1. RITUXAN [Suspect]
     Indication: DIFFUSE LARGE B-CELL LYMPHOMA
     Dosage: 480 MG, INTRAVENOUS
     Route: 042
     Dates: start: 20050803, end: 20051221
  2. DOXORUBICIN HYDROCHLORIDE [Concomitant]
  3. ENDOXAN (CYCLOPHOSHAMIDE) [Concomitant]
  4. ONCOVIN [Concomitant]
  5. PREDONINE (PREDNISOLONE, PREDNISOLONE ACETATE, PREDNISOLONE SODIUM SUC [Concomitant]
  6. MAGNESIUM OXIDE (MAGNESIUM OXIDE) [Concomitant]

REACTIONS (12)
  - CEREBRAL INFARCTION [None]
  - CRANIAL NERVE DISORDER [None]
  - DYSPHAGIA [None]
  - HYPOAESTHESIA [None]
  - IIIRD NERVE PARESIS [None]
  - INJURY [None]
  - LYMPHOCYTIC INFILTRATION [None]
  - NEUROPATHY PERIPHERAL [None]
  - OSTEOARTHRITIS [None]
  - PARALYSIS [None]
  - PROTEIN TOTAL INCREASED [None]
  - VIRAL INFECTION [None]
